FAERS Safety Report 8920249 (Version 2)
Quarter: 2012Q4

REPORT INFORMATION
  Report Type: 
  Country: RS (occurrence: RS)
  Receive Date: 20121122
  Receipt Date: 20121128
  Transmission Date: 20130627
  Serious: Yes (Hospitalization, Other)
  Sender: FDA-Public Use
  Company Number: PHHY2012RS105119

PATIENT
  Age: 30 Year
  Sex: Female

DRUGS (8)
  1. METRONIDAZOLE [Suspect]
     Indication: CLOSTRIDIAL INFECTION
     Dosage: 500 mg, TID
  2. TACROLIMUS [Interacting]
     Indication: IMMUNOSUPPRESSION
     Dosage: 4.5 mg, BID
  3. TACROLIMUS [Interacting]
     Dosage: 2 mg, BID
  4. TACROLIMUS [Interacting]
     Dosage: 1 mg, BID
  5. MYCOPHENOLATE MOFETIL [Concomitant]
     Dosage: 5000 mg, BID
  6. PREDNISONE [Concomitant]
     Dosage: 20 mg daily
  7. CARVEDILOL [Concomitant]
     Dosage: 6.25 mg, BID
  8. METHYLDOPA [Concomitant]
     Dosage: 500 mg, TID

REACTIONS (7)
  - Metabolic acidosis [Recovering/Resolving]
  - Dehydration [Recovering/Resolving]
  - Asthenia [Recovered/Resolved]
  - Hypomagnesaemia [Recovered/Resolved]
  - Blood creatinine increased [Recovered/Resolved]
  - Drug interaction [Unknown]
  - Drug level increased [Recovered/Resolved]
